FAERS Safety Report 24779751 (Version 1)
Quarter: 2024Q4

REPORT INFORMATION
  Report Type: Spontaneous
  Country: GB (occurrence: GB)
  Receive Date: 20241226
  Receipt Date: 20241226
  Transmission Date: 20250114
  Serious: Yes (Other)
  Sender: TEVA
  Company Number: GB-MHRA-TPP31987892C9548181YC1734428043311

PATIENT
  Age: 79 Year
  Sex: Female
  Weight: 72 kg

DRUGS (8)
  1. TRIMETHOPRIM [Suspect]
     Active Substance: TRIMETHOPRIM
     Indication: Ill-defined disorder
     Dosage: TPP YC - PLEASE RECLASSIFY
     Route: 065
  2. SOLIFENACIN [Concomitant]
     Active Substance: SOLIFENACIN
     Indication: Ill-defined disorder
     Dosage: TPP YC - PLEASE RECLASSIFY
     Dates: start: 20240220
  3. TRIMETHOPRIM [Concomitant]
     Active Substance: TRIMETHOPRIM
     Indication: Ill-defined disorder
     Dosage: TPP YC - PLEASE RECLASSIFY
     Dates: start: 20241211, end: 20241214
  4. CLOBETASOL [Concomitant]
     Active Substance: CLOBETASOL
     Indication: Ill-defined disorder
     Dosage: APPLY ONCE A DAY AS DIRECTED, TPP YC - PLEASE RECLASSIFY
     Dates: start: 20211209
  5. CLARITHROMYCIN [Concomitant]
     Active Substance: CLARITHROMYCIN
     Indication: Ill-defined disorder
     Dosage: TPP YC - PLEASE RECLASSIFY
     Dates: start: 20241120, end: 20241127
  6. AMOXICILLIN [Concomitant]
     Active Substance: AMOXICILLIN
     Indication: Ill-defined disorder
     Dosage: TIME INTERVAL: 0.33333333 DAYS: TPP YC - PLEASE RECLASSIFY
     Dates: start: 20241108, end: 20241113
  7. ESTRADIOL [Concomitant]
     Active Substance: ESTRADIOL
     Indication: Ill-defined disorder
     Dosage: INSERT AS DIRECTED, TPP YC - PLEASE RECLASSIFY
     Dates: start: 20220609
  8. HYDROMOL [Concomitant]
     Indication: Ill-defined disorder
     Dosage: APPLY THREE TIMES A DAY AS DIRECTED, TPP YC - PLEASE RECLASSIFY
     Dates: start: 20211209

REACTIONS (3)
  - Chromaturia [Unknown]
  - Headache [Recovered/Resolved]
  - Back pain [Recovered/Resolved]
